FAERS Safety Report 4416956-7 (Version None)
Quarter: 2004Q3

REPORT INFORMATION
  Report Type: 
  Country: None (occurrence: None)
  Receive Date: 20040806
  Receipt Date: 20021021
  Transmission Date: 20050211
  Serious: No
  Sender: FDA-Public Use
  Company Number: US-GLAXOSMITHKLINE-A0383873A

PATIENT
  Age: 65 Year
  Sex: Female

DRUGS (8)
  1. STELAZINE [Suspect]
     Indication: ANXIETY
     Dosage: 2VA SEE DOSAGE TEXT
     Route: 048
     Dates: start: 19640101
  2. TOFRANIL [Concomitant]
     Dosage: 50MG PER DAY
  3. GEMFIBROZIL [Concomitant]
  4. RANITIDINE [Concomitant]
  5. ASPIRIN [Concomitant]
  6. XALATAN [Concomitant]
  7. TIMOLOL MALEATE [Concomitant]
  8. ZESTRIL [Concomitant]

REACTIONS (6)
  - DYSKINESIA [None]
  - GASTROINTESTINAL DISORDER [None]
  - GLAUCOMA [None]
  - RETINAL DISORDER [None]
  - VISUAL FIELD DEFECT [None]
  - VITREOUS DISORDER [None]
